FAERS Safety Report 5231555-5 (Version None)
Quarter: 2007Q1

REPORT INFORMATION
  Report Type: 
  Country: None (occurrence: None)
  Receive Date: 20070202
  Receipt Date: 20070119
  Transmission Date: 20070707
  Serious: Yes (Other)
  Sender: FDA-Public Use
  Company Number: 070123-0000108

PATIENT
  Age: 41 Year
  Sex: Female

DRUGS (2)
  1. METHAMPHETAMINE (METHAMPHETAMINE HYDROCHLORIDE) [Suspect]
     Indication: DRUG USE FOR UNKNOWN INDICATION
     Dates: end: 20030101
  2. COCAINE (COACINE) [Suspect]
     Indication: DRUG USE FOR UNKNOWN INDICATION

REACTIONS (1)
  - PULMONARY HYPERTENSION [None]
